FAERS Safety Report 7158104-9 (Version None)
Quarter: 2010Q4

REPORT INFORMATION
  Report Type: 
  Country: None (occurrence: None)
  Receive Date: 20101214
  Receipt Date: 20100426
  Transmission Date: 20110411
  Serious: No
  Sender: FDA-Public Use
  Company Number: US-ASTRAZENECA-2010SE18662

PATIENT
  Sex: Female
  Weight: 83 kg

DRUGS (4)
  1. CRESTOR [Suspect]
     Indication: BLOOD CHOLESTEROL
     Route: 048
  2. GLYPEZIDE [Concomitant]
     Indication: DIABETES MELLITUS
  3. VERAPAMIL [Concomitant]
     Indication: BLOOD PRESSURE
  4. ASPIRIN [Concomitant]
     Indication: THROMBOSIS PROPHYLAXIS

REACTIONS (1)
  - FLATULENCE [None]
